FAERS Safety Report 23059677 (Version 3)
Quarter: 2023Q4

REPORT INFORMATION
  Report Type: Report from Study
  Country: IE (occurrence: IE)
  Receive Date: 20231012
  Receipt Date: 20231113
  Transmission Date: 20240110
  Serious: Yes (Hospitalization)
  Sender: FDA-Public Use
  Company Number: IE-Eisai Medical Research-EC-2023-149271

PATIENT
  Age: 75 Year
  Sex: Female
  Weight: 97.8 kg

DRUGS (31)
  1. LENVATINIB [Suspect]
     Active Substance: LENVATINIB
     Indication: Renal cell carcinoma
     Dosage: STARTING AT 20 MILLIGRAM, FLUCTUATED DOSE
     Route: 048
     Dates: start: 20130331, end: 20230917
  2. LENVATINIB [Suspect]
     Active Substance: LENVATINIB
     Dosage: STARTING AT 20 MILLIGRAM, FLUCTUATED DOSE
     Route: 048
     Dates: start: 20231004
  3. BELZUTIFAN [Suspect]
     Active Substance: BELZUTIFAN
     Indication: Renal cell carcinoma
     Dosage: STARTING AT 120 MILLIGRAM, FLUCTUATED DOSE
     Route: 048
     Dates: start: 20130331, end: 20230917
  4. BELZUTIFAN [Suspect]
     Active Substance: BELZUTIFAN
     Dosage: STARTING AT 120 MILLIGRAM, FLUCTUATED DOSE
     Route: 048
     Dates: start: 20231004
  5. PERINDOPRIL ARGININE [Concomitant]
     Active Substance: PERINDOPRIL ARGININE
     Dates: start: 19940201
  6. PREGABALIN [Concomitant]
     Active Substance: PREGABALIN
     Dates: start: 20230525
  7. ORAMORPH SR SUSTAINED RELEASE [Concomitant]
     Active Substance: MORPHINE SULFATE
     Dates: start: 20230526
  8. MELATONIN [Concomitant]
     Active Substance: MELATONIN
     Dates: start: 20230526
  9. LACTULOSE [Concomitant]
     Active Substance: LACTULOSE
     Dates: start: 20230527
  10. FUROSEMIDE [Concomitant]
     Active Substance: FUROSEMIDE
     Dates: start: 20230604
  11. CYCLIZINE [Concomitant]
     Active Substance: CYCLIZINE
     Dates: start: 20230610
  12. ALUMINIUM HYDROXIDE;DIPHENHYDRAMINE;LIDOCAINE;MAGNESIUM HYDROXIDE [Concomitant]
     Dates: start: 20230728
  13. CEPHALEXIN [Concomitant]
     Active Substance: CEPHALEXIN
     Dates: start: 20230619
  14. MORPHINE SULFATE [Concomitant]
     Active Substance: MORPHINE SULFATE
     Dates: start: 20230619
  15. RIFAMPIN [Concomitant]
     Active Substance: RIFAMPIN
     Dates: start: 20230718
  16. MYCOSTATIN [Concomitant]
     Active Substance: NYSTATIN
     Dates: start: 20230728
  17. SODIUM CHLORIDE [Concomitant]
     Active Substance: SODIUM CHLORIDE
     Dates: start: 20230728
  18. GENTAMICIN [Concomitant]
     Active Substance: GENTAMICIN
     Dates: start: 20230904, end: 20230904
  19. ACETAMINOPHEN [Concomitant]
     Active Substance: ACETAMINOPHEN
     Dates: start: 20221030
  20. PARAFFIN [Concomitant]
     Active Substance: PARAFFIN
     Dates: start: 20221201
  21. SENNOSIDES A AND B [Concomitant]
     Active Substance: SENNOSIDES A AND B
     Dates: start: 20230331
  22. CHLORPHENIRAMINE MALEATE [Concomitant]
     Active Substance: CHLORPHENIRAMINE MALEATE
     Dates: start: 20230408
  23. LANSOPRAZOLE [Concomitant]
     Active Substance: LANSOPRAZOLE
     Dates: start: 20230525
  24. FOLIC ACID [Concomitant]
     Active Substance: FOLIC ACID
     Dates: start: 20230803
  25. FERROUS FUMARATE [Concomitant]
     Active Substance: FERROUS FUMARATE
     Dates: start: 20230803
  26. LEVOTHYROXINE [Concomitant]
     Active Substance: LEVOTHYROXINE
     Dates: start: 20230731
  27. AMILORIDE HYDROCHLORIDE\FUROSEMIDE [Concomitant]
     Active Substance: AMILORIDE HYDROCHLORIDE\FUROSEMIDE
     Dates: start: 20230809
  28. PERINDOPRIL [Concomitant]
     Active Substance: PERINDOPRIL
     Dates: start: 20230821
  29. FLUCONAZOLE [Concomitant]
     Active Substance: FLUCONAZOLE
     Dates: start: 20230904
  30. VAGIFEM [Concomitant]
     Active Substance: ESTRADIOL
     Dates: start: 20230904, end: 20230918
  31. CLOTRIMAZOLE [Concomitant]
     Active Substance: CLOTRIMAZOLE
     Dates: start: 20230912, end: 20230926

REACTIONS (1)
  - Urosepsis [Recovered/Resolved]

NARRATIVE: CASE EVENT DATE: 20230917
